FAERS Safety Report 4911214-6 (Version None)
Quarter: 2006Q1

REPORT INFORMATION
  Report Type: 
  Country: None (occurrence: None)
  Receive Date: 20060209
  Receipt Date: 20040122
  Transmission Date: 20060701
  Serious: Yes (Hospitalization)
  Sender: FDA-Public Use
  Company Number: HQ3169809JUL2002

PATIENT
  Age: 62 Year
  Sex: Male

DRUGS (4)
  1. GEMTUZUMAB OZOGAMICIN (GEMTUZUMAB OZOGAMICIN, INJECTION) [Suspect]
     Indication: ACUTE MYELOID LEUKAEMIA
     Dosage: SEE IMAGE
     Route: 042
     Dates: start: 20020611, end: 20020611
  2. GEMTUZUMAB OZOGAMICIN (GEMTUZUMAB OZOGAMICIN, INJECTION) [Suspect]
     Indication: ACUTE MYELOID LEUKAEMIA
     Dosage: SEE IMAGE
     Route: 042
     Dates: start: 20020618, end: 20020618
  3. CYTARABINE [Concomitant]
  4. PANTOPRAZOLE SODIUM [Concomitant]

REACTIONS (5)
  - ARTHRITIS [None]
  - BLOOD CREATININE INCREASED [None]
  - PLATELET COUNT DECREASED [None]
  - RETINAL HAEMORRHAGE [None]
  - VISUAL ACUITY REDUCED [None]
